FAERS Safety Report 20733063 (Version 2)
Quarter: 2022Q2

REPORT INFORMATION
  Report Type: Spontaneous
  Country: US (occurrence: US)
  Receive Date: 20220421
  Receipt Date: 20220504
  Transmission Date: 20220721
  Serious: Yes (Other)
  Sender: FDA-Public Use
  Company Number: US-BRISTOL-MYERS SQUIBB COMPANY-2022-021041

PATIENT
  Age: 89 Year
  Sex: Male

DRUGS (1)
  1. REVLIMID [Suspect]
     Active Substance: LENALIDOMIDE
     Indication: Product used for unknown indication
     Route: 048
     Dates: start: 20220322

REACTIONS (9)
  - Full blood count decreased [Unknown]
  - Fatigue [Unknown]
  - Hot flush [Unknown]
  - Back pain [Unknown]
  - Oral pain [Unknown]
  - Dizziness [Unknown]
  - Walking aid user [Unknown]
  - Paraesthesia [Unknown]
  - Chest pain [Unknown]
